FAERS Safety Report 5095087-X (Version None)
Quarter: 2006Q3

REPORT INFORMATION
  Report Type: 
  Country: None (occurrence: None)
  Receive Date: 20060901
  Receipt Date: 20060824
  Transmission Date: 20061208
  Serious: Yes (Other)
  Sender: FDA-Public Use
  Company Number: PHFR2006GB02661

PATIENT
  Age: 66 Year
  Sex: Female

DRUGS (10)
  1. NATEGLINIDE [Suspect]
     Indication: DIABETES MELLITUS NON-INSULIN-DEPENDENT
     Dosage: 60 MG, TID
     Route: 048
     Dates: start: 20060317, end: 20060324
  2. AQUEOUS CREAM [Concomitant]
     Route: 065
  3. ASPIRIN [Concomitant]
     Dosage: 75 MG, QD
     Route: 048
  4. EMULSIDERM [Concomitant]
     Route: 065
  5. FLUARIX [Concomitant]
     Route: 065
  6. LORATADINE [Concomitant]
     Dosage: 10 MG, QD
     Route: 048
  7. METFORMIN HYDROCHLORIDE [Concomitant]
     Dosage: 500 MG, BID
     Route: 048
  8. PNEUMOVAX 23 [Concomitant]
     Route: 051
  9. RAMIPRIL [Concomitant]
     Dosage: 10 MG, QD
     Route: 048
  10. SIMVASTATIN [Concomitant]
     Dosage: 20 MG, QD
     Route: 048

REACTIONS (6)
  - DIZZINESS [None]
  - DYSPNOEA [None]
  - FLUID RETENTION [None]
  - FOOD CRAVING [None]
  - NAUSEA [None]
  - WEIGHT INCREASED [None]
